FAERS Safety Report 15010858 (Version 1)
Quarter: 2018Q2

REPORT INFORMATION
  Report Type: Report from Study
  Country: US (occurrence: US)
  Receive Date: 20180614
  Receipt Date: 20180614
  Transmission Date: 20180711
  Serious: Yes (Other)
  Sender: FDA-Public Use
  Company Number: US-JAZZ-2017-US-002237

PATIENT
  Sex: Female

DRUGS (33)
  1. ZINC CHELATE [Concomitant]
  2. DEPLIN [Concomitant]
     Active Substance: LEVOMEFOLATE CALCIUM
  3. VITAMIN B COMPLEX [Concomitant]
     Active Substance: CYANOCOBALAMIN\DEXPANTHENOL\NIACINAMIDE\PYRIDOXINE HYDROCHLORIDE\RIBOFLAVIN 5^-PHOSPHATE SODIUM\THIAMINE HYDROCHLORIDE\VITAMIN B COMPLEX
  4. OLIVE LEAF EXTRACT [Concomitant]
  5. RITALIN [Concomitant]
     Active Substance: METHYLPHENIDATE HYDROCHLORIDE
  6. VITAMIN D3 [Concomitant]
     Active Substance: CHOLECALCIFEROL
  7. PRIMIDONE. [Concomitant]
     Active Substance: PRIMIDONE
  8. BACLOFEN. [Concomitant]
     Active Substance: BACLOFEN
  9. NALTREXONE HCL [Concomitant]
     Active Substance: NALTREXONE HYDROCHLORIDE
  10. KETAMINE HCL [Concomitant]
     Active Substance: KETAMINE HYDROCHLORIDE
  11. MELOXICAM. [Concomitant]
     Active Substance: MELOXICAM
  12. TOPIRAMATE. [Concomitant]
     Active Substance: TOPIRAMATE
  13. MELATONIN [Concomitant]
     Active Substance: MELATONIN
  14. XYREM [Suspect]
     Active Substance: SODIUM OXYBATE
     Dosage: 4.5 G, BID
     Route: 048
     Dates: start: 201510
  15. GABAPENTIN. [Suspect]
     Active Substance: GABAPENTIN
     Indication: PRODUCT USED FOR UNKNOWN INDICATION
     Dosage: UNK
     Dates: start: 20170102, end: 20170209
  16. BUPRENORPHINE. [Concomitant]
     Active Substance: BUPRENORPHINE
  17. KLONOPIN [Concomitant]
     Active Substance: CLONAZEPAM
  18. BUSPAR [Suspect]
     Active Substance: BUSPIRONE HYDROCHLORIDE
     Indication: PRODUCT USED FOR UNKNOWN INDICATION
  19. ATENOLOL. [Concomitant]
     Active Substance: ATENOLOL
  20. VITAMIN B6 [Concomitant]
     Active Substance: PYRIDOXINE HYDROCHLORIDE
  21. TIZANIDINE HCL [Concomitant]
     Active Substance: TIZANIDINE HYDROCHLORIDE
  22. XYREM [Suspect]
     Active Substance: SODIUM OXYBATE
     Indication: NARCOLEPSY
     Dosage: 3 G, BID
     Route: 048
     Dates: start: 201302, end: 201303
  23. PRISTIQ EXTENDED-RELEASE [Concomitant]
     Active Substance: DESVENLAFAXINE SUCCINATE
  24. SUBOXONE [Concomitant]
     Active Substance: BUPRENORPHINE HYDROCHLORIDE\NALOXONE HYDROCHLORIDE
  25. DEXEDRINE [Concomitant]
     Active Substance: DEXTROAMPHETAMINE SULFATE
  26. XYREM [Suspect]
     Active Substance: SODIUM OXYBATE
     Dosage: DOSE ADJUSTMENT
     Route: 048
     Dates: start: 201303, end: 2015
  27. BUSPIRONE HCL [Concomitant]
     Active Substance: BUSPIRONE HYDROCHLORIDE
  28. NUVIGIL [Concomitant]
     Active Substance: ARMODAFINIL
  29. TEMAZEPAM. [Concomitant]
     Active Substance: TEMAZEPAM
  30. AMBIEN [Concomitant]
     Active Substance: ZOLPIDEM TARTRATE
  31. CLONAZEPAM. [Concomitant]
     Active Substance: CLONAZEPAM
  32. LUNESTA [Concomitant]
     Active Substance: ESZOPICLONE
  33. TYLENOL EXTRA STRENGTH [Concomitant]
     Active Substance: ACETAMINOPHEN

REACTIONS (8)
  - Urine bilirubin increased [Unknown]
  - Drug ineffective [Unknown]
  - Blood potassium decreased [Unknown]
  - Snoring [Recovering/Resolving]
  - Panic disorder [Recovered/Resolved]
  - Gastrointestinal bacterial overgrowth [Unknown]
  - Anxiety [Not Recovered/Not Resolved]
  - Irritable bowel syndrome [Not Recovered/Not Resolved]
